FAERS Safety Report 25008191 (Version 1)
Quarter: 2025Q1

REPORT INFORMATION
  Report Type: Spontaneous
  Country: AU (occurrence: AU)
  Receive Date: 20250225
  Receipt Date: 20250225
  Transmission Date: 20250408
  Serious: Yes (Other)
  Sender: ACCORD
  Company Number: None

PATIENT
  Age: 39 Year
  Sex: Female

DRUGS (6)
  1. FLUOROURACIL [Suspect]
     Active Substance: FLUOROURACIL
     Indication: Product used for unknown indication
  2. CAPECITABINE [Suspect]
     Active Substance: CAPECITABINE
     Indication: Product used for unknown indication
  3. OXALIPLATIN [Suspect]
     Active Substance: OXALIPLATIN
     Indication: Product used for unknown indication
  4. IRINOTECAN [Suspect]
     Active Substance: IRINOTECAN
     Indication: Product used for unknown indication
  5. LEUCOVORIN [Suspect]
     Active Substance: LEUCOVORIN\LEUCOVORIN CALCIUM
     Indication: Product used for unknown indication
  6. AVASTIN [Suspect]
     Active Substance: BEVACIZUMAB
     Indication: Product used for unknown indication

REACTIONS (2)
  - Febrile neutropenia [Unknown]
  - Pneumonia [Unknown]
